FAERS Safety Report 9425104 (Version 1)
Quarter: 2013Q3

REPORT INFORMATION
  Report Type: Spontaneous
  Country: US (occurrence: US)
  Receive Date: 20130729
  Receipt Date: 20130729
  Transmission Date: 20140515
  Serious: Yes (Hospitalization)
  Sender: FDA-Public Use
  Company Number: US-B.I. PHARMACEUTICALS,INC./RIDGEFIELD-2013-BI-21982BP

PATIENT
  Age: 73 Year
  Sex: Female

DRUGS (2)
  1. SPIRIVA [Suspect]
     Indication: CHRONIC OBSTRUCTIVE PULMONARY DISEASE
     Dosage: 18 MCG
     Route: 055
     Dates: start: 2009
  2. COUMADIN [Concomitant]

REACTIONS (4)
  - Pelvic haematoma [Recovered/Resolved]
  - Femoral artery occlusion [Recovered/Resolved]
  - Pneumonia viral [Recovered/Resolved]
  - Pulmonary embolism [Recovered/Resolved]
